FAERS Safety Report 6782853-5 (Version None)
Quarter: 2010Q2

REPORT INFORMATION
  Report Type: 
  Country: None (occurrence: None)
  Receive Date: 20100617
  Receipt Date: 20100603
  Transmission Date: 20101027
  Serious: Yes (Other)
  Sender: FDA-Public Use
  Company Number: 2010-1969

PATIENT
  Age: 76 Year
  Sex: Female
  Weight: 74.4 kg

DRUGS (6)
  1. SOMATULINE DEPOT [Suspect]
     Indication: ACROMEGALY
     Dosage: 90 MG (90MG 1 IN 28 D SUBCUTANEOUS)
     Route: 058
     Dates: start: 20100118, end: 20100215
  2. GLIMEPIRIDE [Concomitant]
  3. PLAVIX [Concomitant]
  4. EXFORGE (AMLODIPINE) [Concomitant]
  5. HYDRALAZINE HCL [Concomitant]
  6. CARBTROL (CARBAMAZEPINE) [Concomitant]

REACTIONS (7)
  - BALANCE DISORDER [None]
  - DIZZINESS [None]
  - FALL [None]
  - INJECTION SITE PAIN [None]
  - PURULENCE [None]
  - TRIGEMINAL NEURALGIA [None]
  - VISION BLURRED [None]
